FAERS Safety Report 25587145 (Version 1)
Quarter: 2025Q3

REPORT INFORMATION
  Report Type: Spontaneous
  Country: US (occurrence: US)
  Receive Date: 20250721
  Receipt Date: 20250721
  Transmission Date: 20251021
  Serious: No
  Sender: Kenvue
  Company Number: US-KENVUE-20250700397

PATIENT

DRUGS (2)
  1. MOTRIN [Suspect]
     Active Substance: IBUPROFEN
     Indication: Arthralgia
     Route: 065
  2. MOTRIN [Suspect]
     Active Substance: IBUPROFEN
     Indication: Inflammation

REACTIONS (6)
  - Renal disorder [Recovered/Resolved]
  - Nerve injury [Recovered/Resolved]
  - Blood pressure increased [Recovered/Resolved]
  - Oedema peripheral [Recovered/Resolved]
  - Inflammation [Recovered/Resolved]
  - Product use in unapproved indication [Unknown]
